FAERS Safety Report 5139086-8 (Version None)
Quarter: 2006Q4

REPORT INFORMATION
  Report Type: 
  Country: None (occurrence: None)
  Receive Date: 20061030
  Receipt Date: 20060619
  Transmission Date: 20070319
  Serious: No
  Sender: FDA-Public Use
  Company Number: US-GLAXOSMITHKLINE-A0609545A

PATIENT
  Age: 60 Year
  Sex: Female

DRUGS (3)
  1. ADVAIR HFA [Suspect]
     Indication: ASTHMA
     Route: 055
     Dates: start: 20051001, end: 20060501
  2. DYAZIDE [Concomitant]
  3. ZOLOFT [Concomitant]

REACTIONS (3)
  - GLOSSITIS [None]
  - ORAL PAIN [None]
  - TONGUE COATED [None]
